FAERS Safety Report 7867059-0 (Version None)
Quarter: 2011Q4

REPORT INFORMATION
  Report Type: 
  Country: None (occurrence: None)
  Receive Date: 20111028
  Receipt Date: 20111019
  Transmission Date: 20120403
  Serious: Yes (Hospitalization)
  Sender: FDA-Public Use
  Company Number: KR-JNJFOC-20080504885

PATIENT
  Age: 20 Year
  Sex: Female
  Weight: 47 kg

DRUGS (9)
  1. INFLIXIMAB [Suspect]
     Route: 042
     Dates: start: 20071224
  2. INFLIXIMAB [Suspect]
     Route: 042
     Dates: start: 20080224
  3. INFLIXIMAB [Suspect]
     Route: 042
     Dates: start: 20071224
  4. INFLIXIMAB [Suspect]
     Indication: ANAL FISTULA
     Route: 042
     Dates: start: 20071107
  5. LACTOBACILLUS [Concomitant]
     Indication: CROHN'S DISEASE
     Route: 048
     Dates: start: 20060926
  6. AZATHIOPRINE [Concomitant]
     Indication: CROHN'S DISEASE
     Route: 048
     Dates: start: 20030106
  7. INFLIXIMAB [Suspect]
     Indication: CROHN'S DISEASE
     Route: 042
     Dates: start: 20071107
  8. PENTASA [Concomitant]
     Indication: CROHN'S DISEASE
     Route: 048
     Dates: start: 20021203
  9. INFLIXIMAB [Suspect]
     Route: 042
     Dates: start: 20080224

REACTIONS (1)
  - PULMONARY TUBERCULOSIS [None]
